FAERS Safety Report 9557822 (Version 1)
Quarter: 2013Q3

REPORT INFORMATION
  Report Type: Report from Study
  Country: CA (occurrence: CA)
  Receive Date: 20130926
  Receipt Date: 20130926
  Transmission Date: 20140515
  Serious: Yes (Other)
  Sender: FDA-Public Use
  Company Number: CA-JNJFOC-20130912270

PATIENT
  Age: 51 Year
  Sex: Female
  Weight: 117 kg

DRUGS (2)
  1. REMICADE [Suspect]
     Indication: CROHN^S DISEASE
     Route: 042
     Dates: start: 20090202
  2. REMICADE [Suspect]
     Indication: CROHN^S DISEASE
     Route: 042
     Dates: start: 20130918

REACTIONS (3)
  - Bladder repair [Recovering/Resolving]
  - Rectocele [Recovering/Resolving]
  - Drug ineffective [Unknown]
